FAERS Safety Report 12779791 (Version 1)
Quarter: 2016Q3

REPORT INFORMATION
  Report Type: Spontaneous
  Country: US (occurrence: US)
  Receive Date: 20160925
  Receipt Date: 20160925
  Transmission Date: 20161109
  Serious: Yes (Hospitalization)
  Sender: FDA-Public Use
  Company Number: None

PATIENT
  Age: 27 Year
  Sex: Male
  Weight: 73.35 kg

DRUGS (6)
  1. MONTELUKAST SODIUM. [Concomitant]
     Active Substance: MONTELUKAST SODIUM
  2. SYMBICORT [Concomitant]
     Active Substance: BUDESONIDE\FORMOTEROL FUMARATE DIHYDRATE
  3. CETIRIZINE HCL [Concomitant]
     Active Substance: CETIRIZINE HYDROCHLORIDE
  4. PROAIR RESPICLICK [Concomitant]
     Active Substance: ALBUTEROL SULFATE
  5. KEFLEX [Suspect]
     Active Substance: CEPHALEXIN
     Indication: CELLULITIS
     Route: 048
     Dates: start: 20160919, end: 20160920
  6. KEFLEX [Suspect]
     Active Substance: CEPHALEXIN
     Indication: ARTHROPOD BITE
     Route: 048
     Dates: start: 20160919, end: 20160920

REACTIONS (4)
  - Urticaria [None]
  - Pain [None]
  - Rash generalised [None]
  - Pruritus [None]

NARRATIVE: CASE EVENT DATE: 20160920
